FAERS Safety Report 15861848 (Version 2)
Quarter: 2019Q1

REPORT INFORMATION
  Report Type: Spontaneous
  Country: US (occurrence: US)
  Receive Date: 20190124
  Receipt Date: 20190319
  Transmission Date: 20190417
  Serious: No
  Sender: FDA-Public Use
  Company Number: US-PFIZER INC-2019032313

PATIENT
  Age: 61 Year
  Sex: Female

DRUGS (1)
  1. TOFACITINIB CITRATE [Suspect]
     Active Substance: TOFACITINIB CITRATE
     Dosage: 30 MG, 2X/DAY

REACTIONS (4)
  - Prescribed overdose [Unknown]
  - Feeling abnormal [Unknown]
  - Agitation [Unknown]
  - Mood swings [Unknown]
